FAERS Safety Report 11277102 (Version 1)
Quarter: 2015Q3

REPORT INFORMATION
  Report Type: Spontaneous
  Country: CH (occurrence: CH)
  Receive Date: 20150716
  Receipt Date: 20150716
  Transmission Date: 20151125
  Serious: Yes (Life-Threatening, Hospitalization, Other)
  Sender: FDA-Public Use
  Company Number: CH-PFIZER INC-2015235705

PATIENT
  Age: 55 Year
  Sex: Male
  Weight: 70 kg

DRUGS (17)
  1. SOLU-MEDROL [Suspect]
     Active Substance: METHYLPREDNISOLONE SODIUM SUCCINATE
     Dosage: 250 MG, 1X/DAY
     Route: 042
     Dates: start: 20150123, end: 20150123
  2. SIMULECT [Interacting]
     Active Substance: BASILIXIMAB
     Dosage: 20 MG, 1X/DAY
     Route: 042
     Dates: start: 20150123, end: 20150123
  3. CALCIMAGON D3 [Concomitant]
     Active Substance: CALCIUM\CHOLECALCIFEROL
     Indication: OSTEOPOROSIS
     Dosage: 1 DF, 1X/DAY
     Route: 048
  4. AMLODIPINE [Concomitant]
     Active Substance: AMLODIPINE BESYLATE
     Dosage: 5 MG, 1X/DAY
     Route: 048
  5. MYCOSTATIN [Concomitant]
     Active Substance: NYSTATIN
     Indication: ANTIBIOTIC PROPHYLAXIS
     Dosage: 1 ML, 3X/DAY
     Route: 048
  6. ELIQUIS [Concomitant]
     Active Substance: APIXABAN
     Indication: VENOUS THROMBOSIS
     Dosage: 2.5 MG, 2X/DAY
     Route: 048
     Dates: start: 201501, end: 20150420
  7. NEPHROTRANS [Concomitant]
     Dosage: 1 DF, 2X/DAY (2 - 0 - 1)
     Route: 048
  8. FOSAMAX [Concomitant]
     Active Substance: ALENDRONATE SODIUM
     Indication: OSTEOPOROSIS
     Dosage: 70 MG, WEEKLY
     Route: 048
  9. PREDNISONE. [Interacting]
     Active Substance: PREDNISONE
     Indication: IMMUNOSUPPRESSION
     Dosage: 17.5 MG, 1X/DAY (DECLINING SCHEME)
     Route: 048
     Dates: start: 20150125
  10. VALCYTE [Concomitant]
     Active Substance: VALGANCICLOVIR HYDROCHLORIDE
     Dosage: 450 MG, 2X/WEEK
     Route: 048
  11. SOLU-MEDROL [Suspect]
     Active Substance: METHYLPREDNISOLONE SODIUM SUCCINATE
     Indication: IMMUNOSUPPRESSION
     Dosage: 250 MG, 1X/DAY
     Route: 042
     Dates: start: 20150120, end: 20150120
  12. SANDIMMUN [Interacting]
     Active Substance: CYCLOSPORINE
     Indication: IMMUNOSUPPRESSION
     Dosage: VARIABLE DOSAGES ABOUT 175 MG PER DAY (100 MG, 0-75 MG) ACCORDING TO TARGET
     Route: 048
     Dates: start: 20150122
  13. CELLCEPT [Interacting]
     Active Substance: MYCOPHENOLATE MOFETIL\MYCOPHENOLATE MOFETIL HYDROCHLORIDE
     Indication: IMMUNOSUPPRESSION
     Dosage: 750 MG, 2X/DAY
     Route: 048
     Dates: start: 20150123
  14. MAGNESIOCARD CITRON [Concomitant]
     Dosage: 5 MMOL, 3X/DAY
     Route: 048
  15. PRAVASTATIN [Concomitant]
     Active Substance: PRAVASTATIN\PRAVASTATIN SODIUM
     Dosage: 40 MG, 1X/DAY
     Route: 048
  16. TOREM /01036501/ [Concomitant]
     Active Substance: TORSEMIDE
     Dosage: 2.5 MG, 1X/DAY
     Route: 048
  17. SIMULECT [Interacting]
     Active Substance: BASILIXIMAB
     Indication: IMMUNOSUPPRESSION
     Dosage: 20 MG, 1X/DAY
     Route: 042
     Dates: start: 20150120, end: 20150120

REACTIONS (4)
  - Drug interaction [Recovering/Resolving]
  - Septic shock [Recovered/Resolved]
  - Pneumonia escherichia [Recovering/Resolving]
  - Hypoxia [Recovered/Resolved]

NARRATIVE: CASE EVENT DATE: 20150412
